FAERS Safety Report 12885524 (Version 1)
Quarter: 2016Q4

REPORT INFORMATION
  Report Type: Spontaneous
  Country: US (occurrence: US)
  Receive Date: 20161026
  Receipt Date: 20161026
  Transmission Date: 20170207
  Serious: Yes (Hospitalization, Disabling)
  Sender: FDA-Public Use
  Company Number: None

PATIENT
  Age: 67 Year
  Sex: Male
  Weight: 90.72 kg

DRUGS (6)
  1. LIPITOR [Suspect]
     Active Substance: ATORVASTATIN CALCIUM
  2. ALLOPURINOL. [Suspect]
     Active Substance: ALLOPURINOL
  3. PRADAXA [Suspect]
     Active Substance: DABIGATRAN ETEXILATE MESYLATE
  4. RISPERDAL CONSTA [Suspect]
     Active Substance: RISPERIDONE
     Indication: PRODUCT USED FOR UNKNOWN INDICATION
     Dosage: EVERYTHING IS ILLEGIBLE
  5. METOPROLOL. [Suspect]
     Active Substance: METOPROLOL
  6. SYNTHROID [Suspect]
     Active Substance: LEVOTHYROXINE SODIUM

REACTIONS (7)
  - Confusional state [None]
  - Urinary tract infection [None]
  - Parkinson^s disease [None]
  - Agitation [None]
  - Urinary incontinence [None]
  - Vision blurred [None]
  - Rash [None]

NARRATIVE: CASE EVENT DATE: 20140404
